FAERS Safety Report 9141082 (Version 2)
Quarter: 2013Q1

REPORT INFORMATION
  Report Type: Spontaneous
  Country: US (occurrence: US)
  Receive Date: 20130305
  Receipt Date: 20130318
  Transmission Date: 20140127
  Serious: Yes (Death)
  Sender: FDA-Public Use
  Company Number: US-GILEAD-2013-0070898

PATIENT
  Sex: Female

DRUGS (16)
  1. LETAIRIS [Suspect]
     Indication: PRODUCT USED FOR UNKNOWN INDICATION
     Dosage: 10 MG, QD
     Route: 048
     Dates: start: 20100827, end: 201302
  2. FUROSEMIDE [Concomitant]
  3. ALBUTEROL                          /00139501/ [Concomitant]
  4. OMEPRAZOLE [Concomitant]
  5. VENTOLIN HFA [Concomitant]
  6. SYNTHROID [Concomitant]
  7. LEVOTHYROXINE [Concomitant]
  8. ACETAMINOPHEN W/DIPHENHYDRAMINE HYDROCHLORIDE [Concomitant]
  9. AMLODIPINE [Concomitant]
  10. SIMVASTATIN [Concomitant]
  11. TENORMIN [Concomitant]
  12. PLAVIX [Concomitant]
  13. VITAMIN D3 [Concomitant]
  14. SITAGLIPTIN PHOSPHATE [Concomitant]
  15. VERAMYST [Concomitant]
  16. ADVAIR [Concomitant]

REACTIONS (3)
  - Death [Fatal]
  - Insomnia [Unknown]
  - Dyspnoea [Unknown]
